FAERS Safety Report 6207141-7 (Version None)
Quarter: 2009Q2

REPORT INFORMATION
  Report Type: 
  Country: None (occurrence: None)
  Receive Date: 20090528
  Receipt Date: 20081030
  Transmission Date: 20091009
  Serious: Yes (Hospitalization)
  Sender: FDA-Public Use
  Company Number: US-MERCK-0706USA04486

PATIENT
  Age: 72 Year
  Sex: Female

DRUGS (10)
  1. FOSAMAX [Suspect]
     Indication: OSTEOPOROSIS
     Route: 048
     Dates: start: 20031120, end: 20040701
  2. CYTOTEC [Concomitant]
     Indication: PROPHYLAXIS
     Route: 065
     Dates: start: 19950101
  3. ANSAID [Concomitant]
     Indication: RHEUMATOID ARTHRITIS
     Route: 065
     Dates: start: 19950101
  4. PLAQUENIL [Concomitant]
     Indication: RHEUMATOID ARTHRITIS
     Route: 065
     Dates: start: 19950101
  5. CORTICOSTEROIDS (UNSPECIFIED) [Concomitant]
     Route: 065
     Dates: start: 19950101
  6. HORMONES (UNSPECIFIED) [Concomitant]
     Route: 065
     Dates: start: 20000101, end: 20050722
  7. [THERAPY UNSPECIFIED] [Concomitant]
     Indication: HYPERTENSION
     Route: 065
     Dates: start: 19970101
  8. [THERAPY UNSPECIFIED] [Concomitant]
     Indication: BLOOD CHOLESTEROL INCREASED
     Route: 065
     Dates: start: 19970101
  9. PREDNISONE [Concomitant]
     Route: 065
     Dates: start: 19950101
  10. METHOTREXATE [Concomitant]
     Route: 065
     Dates: end: 20040701

REACTIONS (12)
  - ANXIETY [None]
  - ATRIAL FIBRILLATION [None]
  - DEPRESSION [None]
  - EXOSTOSIS [None]
  - HAEMATOCHEZIA [None]
  - HAEMORRHOIDS [None]
  - JAW FRACTURE [None]
  - MUSCLE STRAIN [None]
  - OSTEOMYELITIS [None]
  - OSTEONECROSIS [None]
  - POSTOPERATIVE WOUND INFECTION [None]
  - RHEUMATOID ARTHRITIS [None]
